FAERS Safety Report 9671480 (Version 1)
Quarter: 2013Q4

REPORT INFORMATION
  Report Type: Spontaneous
  Country: US (occurrence: None)
  Receive Date: 20131105
  Receipt Date: 20131105
  Transmission Date: 20140711
  Serious: Yes (Other)
  Sender: FDA-Public Use
  Company Number: None

PATIENT
  Age: 57 Year
  Sex: Male

DRUGS (1)
  1. MIRVASO [Suspect]
     Indication: ROSACEA
     Dosage: PEAS-SIZED AMT, 5 TOTAL SPOTS, QD, APPLIED TO A SURFACE USUALLY THE SKIN
     Dates: start: 20131008, end: 20131010

REACTIONS (2)
  - Erythema [None]
  - Condition aggravated [None]
